FAERS Safety Report 6249379-9 (Version None)
Quarter: 2009Q2

REPORT INFORMATION
  Report Type: 
  Country: None (occurrence: None)
  Receive Date: 20090629
  Receipt Date: 20090622
  Transmission Date: 20091009
  Serious: Yes (Hospitalization)
  Sender: FDA-Public Use
  Company Number: US-BIOGENIDEC-2009BI016185

PATIENT
  Age: 60 Year
  Sex: Female

DRUGS (10)
  1. AVONEX [Suspect]
     Indication: MULTIPLE SCLEROSIS
     Route: 030
  2. AVONEX [Suspect]
     Route: 030
  3. ALLOPURINOL [Concomitant]
     Indication: DRUG USE FOR UNKNOWN INDICATION
  4. BACLOFEN [Concomitant]
     Indication: DRUG USE FOR UNKNOWN INDICATION
  5. DIGOXIN [Concomitant]
     Indication: DRUG USE FOR UNKNOWN INDICATION
  6. LASIX [Concomitant]
     Indication: DRUG USE FOR UNKNOWN INDICATION
  7. GLIPIZIDE [Concomitant]
     Indication: DRUG USE FOR UNKNOWN INDICATION
  8. METFORMIN [Concomitant]
     Indication: DRUG USE FOR UNKNOWN INDICATION
  9. TRIAMTERENE [Concomitant]
     Indication: DRUG USE FOR UNKNOWN INDICATION
  10. NORVASC [Concomitant]
     Indication: DRUG USE FOR UNKNOWN INDICATION

REACTIONS (10)
  - ASTHENIA [None]
  - BLOOD POTASSIUM DECREASED [None]
  - BLOOD PRESSURE DECREASED [None]
  - COMPLEX PARTIAL SEIZURES [None]
  - DRUG WITHDRAWAL SYNDROME [None]
  - MEAN CELL VOLUME INCREASED [None]
  - MENTAL STATUS CHANGES [None]
  - OEDEMA PERIPHERAL [None]
  - URINARY TRACT INFECTION [None]
  - VENOUS INSUFFICIENCY [None]
